FAERS Safety Report 8377463-2 (Version None)
Quarter: 2012Q2

REPORT INFORMATION
  Report Type: 
  Country: None (occurrence: None)
  Receive Date: 20120522
  Receipt Date: 20120112
  Transmission Date: 20120825
  Serious: No
  Sender: FDA-Public Use
  Company Number: US-ASTRAZENECA-2012SE02576

PATIENT
  Sex: Female

DRUGS (2)
  1. CHEMOTHERAPY [Suspect]
  2. PRILOSEC [Suspect]
     Indication: HYPERCHLORHYDRIA
     Route: 048

REACTIONS (1)
  - GASTRIC DISORDER [None]
